FAERS Safety Report 12268934 (Version 2)
Quarter: 2019Q4

REPORT INFORMATION
  Report Type: Spontaneous
  Country: US (occurrence: US)
  Receive Date: 20160414
  Receipt Date: 20191021
  Transmission Date: 20200122
  Serious: Yes (Death, Other)
  Sender: FDA-Public Use
  Company Number: US-PFIZER INC-2016208208

PATIENT
  Age: 64 Year
  Sex: Male

DRUGS (8)
  1. FOLIC ACID. [Concomitant]
     Active Substance: FOLIC ACID
     Indication: BLOOD PRESSURE ABNORMAL
     Dosage: UNK
     Dates: end: 20140923
  2. CIALIS [Suspect]
     Active Substance: TADALAFIL
     Indication: ERECTILE DYSFUNCTION
     Dosage: 20 MG, UNK
     Route: 048
     Dates: start: 20040505, end: 20051227
  3. ASPIRIN. [Concomitant]
     Active Substance: ASPIRIN
     Indication: CARDIOVASCULAR EVENT PROPHYLAXIS
     Dosage: UNK
     Dates: start: 200308, end: 20140923
  4. OMEGA-3-DHA-EPA FISH OIL [Concomitant]
     Indication: PROPHYLAXIS
     Dosage: UNK
     Dates: start: 1995, end: 20140923
  5. VIAGRA [Suspect]
     Active Substance: SILDENAFIL CITRATE
     Indication: ERECTILE DYSFUNCTION
     Dosage: 100 MG, UNK
     Route: 048
     Dates: start: 20030108, end: 200502
  6. LEVITRA [Concomitant]
     Active Substance: VARDENAFIL HYDROCHLORIDE
     Indication: ERECTILE DYSFUNCTION
     Dosage: UNK
     Dates: start: 20040505
  7. GLUCOSAMINE CHONDROITIN [Concomitant]
     Active Substance: CHONDROITIN SULFATE (BOVINE)\GLUCOSAMINE HYDROCHLORIDE
     Indication: PROPHYLAXIS
     Dosage: UNK
     Dates: start: 1995, end: 20140923
  8. VITAMIN C [Concomitant]
     Active Substance: ASCORBIC ACID
     Indication: ROUTINE HEALTH MAINTENANCE
     Dosage: UNK

REACTIONS (8)
  - Neoplasm progression [Fatal]
  - Malignant melanoma stage II [Unknown]
  - Malignant melanoma [Unknown]
  - Respiratory arrest [Fatal]
  - Superficial spreading melanoma stage unspecified [Unknown]
  - Lentigo maligna [Unknown]
  - Metastatic malignant melanoma [Fatal]
  - Malignant melanoma in situ [Unknown]

NARRATIVE: CASE EVENT DATE: 200303
